FAERS Safety Report 9686402 (Version 1)
Quarter: 2013Q4

REPORT INFORMATION
  Report Type: Spontaneous
  Country: FR (occurrence: FR)
  Receive Date: 20131113
  Receipt Date: 20131113
  Transmission Date: 20140711
  Serious: Yes (Hospitalization)
  Sender: FDA-Public Use
  Company Number: FR-ASTRAZENECA-2013SE81468

PATIENT
  Age: 26438 Day
  Sex: Female

DRUGS (4)
  1. CARBOCAINE [Suspect]
     Route: 058
     Dates: start: 20131007, end: 20131007
  2. NAROPEINE [Suspect]
     Route: 058
     Dates: start: 20131007, end: 20131007
  3. SUFENTANIL [Concomitant]
     Dosage: 5 UG/KG
     Route: 042
     Dates: start: 20131007, end: 20131007
  4. MIDAZOLAM [Concomitant]
     Route: 042
     Dates: start: 20131007, end: 20131007

REACTIONS (6)
  - Confusional state [Recovered/Resolved]
  - Agitation [Recovered/Resolved]
  - VIIth nerve paralysis [Recovered/Resolved]
  - Logorrhoea [Recovered/Resolved]
  - Dyskinesia [Recovered/Resolved]
  - Incorrect route of drug administration [Unknown]
